FAERS Safety Report 5478698-9 (Version None)
Quarter: 2007Q4

REPORT INFORMATION
  Report Type: 
  Country: None (occurrence: None)
  Receive Date: 20071005
  Receipt Date: 20070921
  Transmission Date: 20080405
  Serious: Yes (Death)
  Sender: FDA-Public Use
  Company Number: JP-GENENTECH-248253

PATIENT
  Sex: Female

DRUGS (12)
  1. BEVACIZUMAB [Suspect]
     Indication: COLON CANCER
     Route: 042
     Dates: start: 20070725
  2. FLUOROURACIL [Concomitant]
     Indication: DRUG USE FOR UNKNOWN INDICATION
     Dosage: UNK, UNK
     Route: 042
     Dates: start: 20070725, end: 20070905
  3. OXALIPLATIN [Concomitant]
     Indication: DRUG USE FOR UNKNOWN INDICATION
     Dosage: UNK, UNK
     Route: 042
     Dates: start: 20070725, end: 20070905
  4. ISOVORIN [Concomitant]
     Indication: DRUG USE FOR UNKNOWN INDICATION
     Dosage: UNK, UNK
     Route: 042
     Dates: start: 20070725, end: 20070905
  5. LANSOPRAZOLE [Concomitant]
     Indication: DRUG USE FOR UNKNOWN INDICATION
  6. NAPROXEN [Concomitant]
     Indication: DRUG USE FOR UNKNOWN INDICATION
  7. METHYCOBAL [Concomitant]
     Indication: DRUG USE FOR UNKNOWN INDICATION
  8. SELBEX [Concomitant]
     Indication: DRUG USE FOR UNKNOWN INDICATION
  9. NAUZELIN [Concomitant]
     Indication: DRUG USE FOR UNKNOWN INDICATION
  10. DECADRON [Concomitant]
     Indication: DRUG USE FOR UNKNOWN INDICATION
  11. OXYCONTIN [Concomitant]
     Indication: DRUG USE FOR UNKNOWN INDICATION
     Dates: start: 20070801
  12. CISPLATIN [Concomitant]
     Indication: DRUG USE FOR UNKNOWN INDICATION
     Dates: start: 20070907

REACTIONS (2)
  - ACUTE PULMONARY OEDEMA [None]
  - THROMBOCYTOPENIA [None]
